FAERS Safety Report 19739725 (Version 2)
Quarter: 2021Q4

REPORT INFORMATION
  Report Type: Spontaneous
  Country: US (occurrence: US)
  Receive Date: 20210824
  Receipt Date: 20211012
  Transmission Date: 20220303
  Serious: Yes (Hospitalization, Other)
  Sender: FDA-Public Use
  Company Number: US-MYLANLABS-2021M1053690

PATIENT
  Sex: Female
  Weight: 75 kg

DRUGS (1)
  1. ESTRADIOL [Suspect]
     Active Substance: ESTRADIOL
     Indication: Vulvovaginal pruritus
     Dosage: UNK UNK, QD
     Route: 067
     Dates: start: 20210621, end: 20210626

REACTIONS (3)
  - Haemorrhage urinary tract [Recovered/Resolved]
  - Urinary tract infection [Recovered/Resolved]
  - Drug hypersensitivity [Recovered/Resolved]
